FAERS Safety Report 24967932 (Version 1)
Quarter: 2025Q1

REPORT INFORMATION
  Report Type: Spontaneous
  Country: US (occurrence: US)
  Receive Date: 20250214
  Receipt Date: 20250214
  Transmission Date: 20250409
  Serious: No
  Sender: ROCHE
  Company Number: US-ROCHE-10000204778

PATIENT
  Sex: Male

DRUGS (3)
  1. COLUMVI [Suspect]
     Active Substance: GLOFITAMAB-GXBM
     Indication: Diffuse large B-cell lymphoma
     Dosage: GIVING MEDICATION PER LABEL
     Route: 042
     Dates: start: 20250122, end: 20250122
  2. COLUMVI [Suspect]
     Active Substance: GLOFITAMAB-GXBM
     Route: 042
  3. COLUMVI [Suspect]
     Active Substance: GLOFITAMAB-GXBM
     Route: 042

REACTIONS (1)
  - Cytokine release syndrome [Recovered/Resolved]

NARRATIVE: CASE EVENT DATE: 20250123
